FAERS Safety Report 23794713 (Version 1)
Quarter: 2024Q2

REPORT INFORMATION
  Report Type: Spontaneous
  Country: US (occurrence: US)
  Receive Date: 20240429
  Receipt Date: 20240429
  Transmission Date: 20240716
  Serious: No
  Sender: FDA-Public Use
  Company Number: US-TEVA-VS-3183210

PATIENT
  Sex: Female

DRUGS (1)
  1. KARIVA [Suspect]
     Active Substance: DESOGESTREL\ETHINYL ESTRADIOL
     Route: 065

REACTIONS (2)
  - Insomnia [Not Recovered/Not Resolved]
  - Headache [Not Recovered/Not Resolved]
